FAERS Safety Report 12752709 (Version 5)
Quarter: 2016Q4

REPORT INFORMATION
  Report Type: Spontaneous
  Country: CA (occurrence: CA)
  Receive Date: 20160916
  Receipt Date: 20161005
  Transmission Date: 20170207
  Serious: Yes (Death, Other)
  Sender: FDA-Public Use
  Company Number: CA-BEH-2016073498

PATIENT
  Age: 85 Year
  Sex: Male

DRUGS (12)
  1. PRIVIGEN [Suspect]
     Active Substance: HUMAN IMMUNOGLOBULIN G
     Dosage: UNK
     Route: 042
     Dates: start: 20160224
  2. PANTOPRAZOLE [Concomitant]
     Active Substance: PANTOPRAZOLE SODIUM
     Route: 065
  3. BICARBONATE [Concomitant]
     Active Substance: BICARBONATE ION
     Route: 065
  4. PRIVIGEN [Suspect]
     Active Substance: HUMAN IMMUNOGLOBULIN G
     Dosage: UNK
     Route: 042
     Dates: start: 20160222
  5. HYDROMORPHONE [Concomitant]
     Active Substance: HYDROMORPHONE
     Route: 065
  6. SALBUTAMOL [Concomitant]
     Active Substance: ALBUTEROL
     Route: 065
  7. PRIVIGEN [Suspect]
     Active Substance: HUMAN IMMUNOGLOBULIN G
     Indication: THROMBOCYTOPENIA
     Dosage: 20 G, UNK
     Route: 042
     Dates: start: 20160225, end: 20160225
  8. ALBUREX [Suspect]
     Active Substance: ALBUMIN HUMAN
     Indication: PRODUCT USED FOR UNKNOWN INDICATION
     Dosage: UNK
     Route: 065
     Dates: start: 20160225, end: 20160225
  9. TYLENOL [Concomitant]
     Active Substance: ACETAMINOPHEN
     Route: 065
  10. PRIVIGEN [Suspect]
     Active Substance: HUMAN IMMUNOGLOBULIN G
     Dosage: UNK
     Route: 042
     Dates: start: 20160221
  11. TAZOCIN [Concomitant]
     Active Substance: PIPERACILLIN SODIUM\TAZOBACTAM SODIUM
     Route: 065
  12. ALLOPURINOL. [Concomitant]
     Active Substance: ALLOPURINOL
     Route: 065

REACTIONS (20)
  - Lymphadenopathy [Fatal]
  - Depressed level of consciousness [Fatal]
  - Pneumothorax [Fatal]
  - Oxygen saturation decreased [Fatal]
  - Lymphoma [Fatal]
  - Retroperitoneal lymphadenopathy [Fatal]
  - Sepsis [Fatal]
  - Fluid overload [Fatal]
  - Pneumonia [Fatal]
  - Anxiety [Not Recovered/Not Resolved]
  - Renal failure [Fatal]
  - Choking sensation [Fatal]
  - Respiratory distress [Fatal]
  - Blood potassium increased [Fatal]
  - Tachycardia [Fatal]
  - Metabolic acidosis [Fatal]
  - Tachypnoea [Fatal]
  - Pleural effusion [Fatal]
  - Dyspnoea [Fatal]
  - Generalised oedema [Fatal]

NARRATIVE: CASE EVENT DATE: 20160225
